FAERS Safety Report 9177227 (Version 1)
Quarter: 2013Q1

REPORT INFORMATION
  Report Type: Spontaneous
  Country: US (occurrence: None)
  Receive Date: 20130320
  Receipt Date: 20130320
  Transmission Date: 20140127
  Serious: Yes (Hospitalization)
  Sender: FDA-Public Use
  Company Number: None

PATIENT
  Sex: Female
  Weight: 50.4 kg

DRUGS (2)
  1. CISPLATIN [Suspect]
  2. ETOPOSIDE (VP-16) [Suspect]

REACTIONS (1)
  - Neutropenia [None]
